FAERS Safety Report 23047516 (Version 2)
Quarter: 2024Q2

REPORT INFORMATION
  Report Type: Spontaneous
  Country: US (occurrence: US)
  Receive Date: 20231010
  Receipt Date: 20240601
  Transmission Date: 20240716
  Serious: Yes (Other)
  Sender: FDA-Public Use
  Company Number: US-AUROBINDO-AUR-APL-2023-062404

PATIENT
  Age: 67 Year
  Sex: Male

DRUGS (1)
  1. GLIPIZIDE [Suspect]
     Active Substance: GLIPIZIDE
     Indication: Product used for unknown indication
     Dosage: UNK (SEVERAL OF PILLS)
     Route: 065

REACTIONS (3)
  - Drug abuse [Unknown]
  - Hypoglycaemia [Recovered/Resolved]
  - Overdose [Unknown]
